FAERS Safety Report 6587324-7 (Version None)
Quarter: 2010Q1

REPORT INFORMATION
  Report Type: 
  Country: None (occurrence: None)
  Receive Date: 20100217
  Receipt Date: 20090518
  Transmission Date: 20100710
  Serious: No
  Sender: FDA-Public Use
  Company Number: US-ALLERGAN-0906914US

PATIENT
  Sex: Female

DRUGS (2)
  1. BOTOX COSMETIC [Suspect]
     Indication: SKIN WRINKLING
     Dosage: 23 UNITS, SINGLE
     Route: 030
     Dates: start: 20090330, end: 20090330
  2. BOTOX COSMETIC [Suspect]
     Dosage: 5 UNITS, SINGLE
     Route: 030
     Dates: start: 20090504, end: 20090504

REACTIONS (2)
  - MUSCLE SPASMS [None]
  - WRONG TECHNIQUE IN DRUG USAGE PROCESS [None]
